FAERS Safety Report 21665761 (Version 3)
Quarter: 2022Q4

REPORT INFORMATION
  Report Type: Report from Study
  Country: US (occurrence: US)
  Receive Date: 20221201
  Receipt Date: 20221206
  Transmission Date: 20230112
  Serious: No
  Sender: FDA-Public Use
  Company Number: US-002147023-NVSC2022US275654

PATIENT
  Sex: Female
  Weight: 82.55 kg

DRUGS (2)
  1. LEQVIO [Suspect]
     Active Substance: INCLISIRAN SODIUM
     Indication: Arteriosclerosis
     Dosage: UNK
     Route: 065
  2. LEQVIO [Suspect]
     Active Substance: INCLISIRAN SODIUM
     Dosage: 1 DOSAGE FORM, QD (60)
     Route: 065
     Dates: start: 20221122, end: 20221122

REACTIONS (4)
  - Rash [Unknown]
  - Erythema [Unknown]
  - Pruritus [Unknown]
  - Muscle spasms [Unknown]
